FAERS Safety Report 21494139 (Version 2)
Quarter: 2022Q4

REPORT INFORMATION
  Report Type: Spontaneous
  Country: US (occurrence: None)
  Receive Date: 20221021
  Receipt Date: 20221110
  Transmission Date: 20230112
  Serious: Yes (Hospitalization, Other)
  Sender: FDA-Public Use
  Company Number: 2022A348187

PATIENT
  Age: 59 Year
  Sex: Female
  Weight: 68 kg

DRUGS (1)
  1. PULMICORT FLEXHALER [Suspect]
     Active Substance: BUDESONIDE
     Indication: Asthma
     Dosage: 180 MCG, TWO PUFF TWICE A DAY
     Route: 055

REACTIONS (8)
  - Metapneumovirus pneumonia [Recovered/Resolved with Sequelae]
  - Vocal cord disorder [Not Recovered/Not Resolved]
  - COVID-19 [Recovered/Resolved]
  - Dyspnoea [Not Recovered/Not Resolved]
  - Exercise tolerance decreased [Not Recovered/Not Resolved]
  - Product dose omission issue [Unknown]
  - Incorrect dose administered by device [Unknown]
  - Product use issue [Unknown]

NARRATIVE: CASE EVENT DATE: 20200101
